FAERS Safety Report 5543317-X (Version None)
Quarter: 2007Q4

REPORT INFORMATION
  Report Type: 
  Country: None (occurrence: None)
  Receive Date: 20071206
  Receipt Date: 20071128
  Transmission Date: 20080405
  Serious: Yes (Other)
  Sender: FDA-Public Use
  Company Number: 239140K07USA

PATIENT
  Age: 65 Year
  Sex: Female

DRUGS (4)
  1. REBIF [Suspect]
     Indication: MULTIPLE SCLEROSIS
     Dosage: 44 MCG, 3 IN 1 WEEKS, SUBCUTANEOUS
     Route: 058
     Dates: start: 20050422
  2. LIPITOR [Concomitant]
  3. PREPARATION H (PREPARATION H) [Concomitant]
  4. TUCKS (TUCKS) [Concomitant]

REACTIONS (5)
  - COLONIC POLYP [None]
  - DIVERTICULITIS [None]
  - LARGE INTESTINE PERFORATION [None]
  - PRECANCEROUS CELLS PRESENT [None]
  - RECTAL HAEMORRHAGE [None]
